FAERS Safety Report 9847268 (Version 1)
Quarter: 2014Q1

REPORT INFORMATION
  Report Type: Spontaneous
  Country: US (occurrence: US)
  Receive Date: 20140127
  Receipt Date: 20140127
  Transmission Date: 20141002
  Serious: Yes (Hospitalization)
  Sender: FDA-Public Use
  Company Number: US-DYAX CORP.-2013DX000084

PATIENT
  Age: 56 Year
  Sex: Female
  Weight: 72.64 kg

DRUGS (7)
  1. KALBITOR [Suspect]
     Indication: HEREDITARY ANGIOEDEMA
     Route: 058
     Dates: start: 20130429, end: 20130429
  2. KALBITOR [Suspect]
     Route: 058
     Dates: start: 20130429, end: 20130429
  3. KALBITOR [Suspect]
     Route: 058
     Dates: start: 2011
  4. FIRAZYR [Concomitant]
     Indication: HEREDITARY ANGIOEDEMA
     Dates: start: 20130428, end: 20130428
  5. FIRAZYR [Concomitant]
     Dates: start: 2011
  6. CINRYZE [Concomitant]
     Indication: HEREDITARY ANGIOEDEMA
     Dosage: DRUG ROUTE: INTRAVENOUS
     Route: 042
     Dates: start: 2011
  7. A WHOLE LIST OF MEDICATIONS [Concomitant]
     Indication: PRODUCT USED FOR UNKNOWN INDICATION

REACTIONS (3)
  - Drug ineffective [Recovered/Resolved]
  - Blood magnesium abnormal [Unknown]
  - Blood potassium abnormal [Unknown]
